FAERS Safety Report 25395941 (Version 1)
Quarter: 2025Q2

REPORT INFORMATION
  Report Type: Spontaneous
  Country: RU (occurrence: RU)
  Receive Date: 20250604
  Receipt Date: 20250604
  Transmission Date: 20250716
  Serious: Yes (Other)
  Sender: TEVA
  Company Number: RU-TEVA-VS-3337199

PATIENT
  Age: 11 Year

DRUGS (4)
  1. FLUCONAZOLE [Interacting]
     Active Substance: FLUCONAZOLE
     Indication: Product used for unknown indication
     Route: 065
  2. IVACAFTOR [Interacting]
     Active Substance: IVACAFTOR
     Indication: Gilbert^s syndrome
     Route: 065
  3. PYRANTEL [Interacting]
     Active Substance: PYRANTEL
     Indication: Product used for unknown indication
     Route: 065
  4. ELEXACAFTOR\IVACAFTOR\TEZACAFTOR [Interacting]
     Active Substance: ELEXACAFTOR\IVACAFTOR\TEZACAFTOR
     Indication: Cystic fibrosis
     Route: 065

REACTIONS (3)
  - Drug-induced liver injury [Unknown]
  - Drug interaction [Unknown]
  - Intentional product misuse [Unknown]
